FAERS Safety Report 21087650 (Version 2)
Quarter: 2022Q3

REPORT INFORMATION
  Report Type: Spontaneous
  Country: AR (occurrence: AR)
  Receive Date: 20220715
  Receipt Date: 20220723
  Transmission Date: 20221027
  Serious: Yes (Other)
  Sender: FDA-Public Use
  Company Number: AR-NOVARTISPH-NVSC2022AR158418

PATIENT
  Age: 75 Year
  Sex: Female

DRUGS (10)
  1. EXFORGE [Suspect]
     Active Substance: AMLODIPINE BESYLATE\VALSARTAN
     Indication: Hypertension
     Dosage: 1 DOSAGE FORM, QD
     Route: 065
     Dates: start: 202108
  2. EXFORGE [Suspect]
     Active Substance: AMLODIPINE BESYLATE\VALSARTAN
     Dosage: 1 DOSAGE FORM, QD
     Route: 065
     Dates: start: 20210921
  3. LEVOTHYROXINE [Concomitant]
     Active Substance: LEVOTHYROXINE
     Indication: Hypothyroidism
     Dosage: 112 UNK (MCG, EVERY DAY FASTING)
     Route: 065
  4. ROSUVASTATIN [Concomitant]
     Active Substance: ROSUVASTATIN
     Indication: Product used for unknown indication
     Dosage: 10 MG, (EVERY DAY)
     Route: 065
     Dates: start: 2008, end: 2011
  5. AMLODIPINE BESYLATE [Concomitant]
     Active Substance: AMLODIPINE BESYLATE
     Indication: Blood pressure increased
     Dosage: 5 MG
     Route: 065
  6. TAFIROL [Concomitant]
     Indication: Product used for unknown indication
     Dosage: 1 MG, BID, (ONE TABLET AT BREAKFAST AND ANOTHER IN THE AFTERNOON)
     Route: 065
  7. RIVOTRIL [Concomitant]
     Active Substance: CLONAZEPAM
     Indication: Product used for unknown indication
     Dosage: 0.5 MG
     Route: 065
  8. RIVOTRIL [Concomitant]
     Active Substance: CLONAZEPAM
     Dosage: 1.5 MG, TID
     Route: 065
     Dates: start: 1990
  9. RISPERIDONE [Concomitant]
     Active Substance: RISPERIDONE
     Indication: Product used for unknown indication
     Dosage: 0.5 UNK, QD
     Route: 065
     Dates: start: 1990
  10. TOTAL MAGNESIANO [Concomitant]
     Indication: Product used for unknown indication
     Dosage: 1 DOSAGE FORM, QD
     Route: 065

REACTIONS (11)
  - Hypertension [Not Recovered/Not Resolved]
  - Headache [Not Recovered/Not Resolved]
  - Anxiety [Unknown]
  - COVID-19 [Unknown]
  - Laryngitis [Unknown]
  - Eating disorder [Unknown]
  - Cough [Unknown]
  - Secretion discharge [Unknown]
  - Hyperhidrosis [Unknown]
  - Pollakiuria [Unknown]
  - Aphonia [Unknown]

NARRATIVE: CASE EVENT DATE: 20220610
